FAERS Safety Report 21199257 (Version 1)
Quarter: 2022Q3

REPORT INFORMATION
  Report Type: Other
  Country: IT (occurrence: None)
  Receive Date: 20220811
  Receipt Date: 20220811
  Transmission Date: 20221027
  Serious: Yes (Hospitalization)
  Sender: FDA-Public Use
  Company Number: IT-ROCHE-3157596

PATIENT
  Age: 79 Year
  Sex: Female

DRUGS (5)
  1. RITUXIMAB [Suspect]
     Active Substance: RITUXIMAB
     Indication: Follicular lymphoma
     Route: 042
  2. BENDAMUSTINE [Suspect]
     Active Substance: BENDAMUSTINE
     Indication: Follicular lymphoma
     Route: 065
  3. ZOFENOPRIL [Concomitant]
     Active Substance: ZOFENOPRIL
     Dosage: 30 MG/DIE
  4. NEBIVOLOL [Concomitant]
     Active Substance: NEBIVOLOL
     Dosage: 5 MG/DIE
  5. AMIODARONE [Concomitant]
     Active Substance: AMIODARONE
     Dosage: 750 MG IN 500 ML OF GLUCOSE 5 % SOLUTION AT 20 ML/H

REACTIONS (1)
  - COVID-19 [Recovered/Resolved]
